FAERS Safety Report 18308819 (Version 1)
Quarter: 2020Q3

REPORT INFORMATION
  Report Type: Report from Study
  Country: PT (occurrence: PT)
  Receive Date: 20200924
  Receipt Date: 20200924
  Transmission Date: 20201103
  Serious: Yes (Other)
  Sender: FDA-Public Use
  Company Number: PT-ASTRAZENECA-2020SF19636

PATIENT
  Age: 30 Year
  Sex: Male

DRUGS (5)
  1. CANNABINOIDS [Concomitant]
     Active Substance: CANNABIS SATIVA FLOWERING TOP
     Route: 065
  2. ALCOHOL. [Concomitant]
     Active Substance: ALCOHOL
     Route: 065
  3. CARBAMAZEPINE. [Interacting]
     Active Substance: CARBAMAZEPINE
     Route: 065
  4. QUETIAPINE. [Suspect]
     Active Substance: QUETIAPINE
     Route: 048
  5. TRAZODONE [Concomitant]
     Active Substance: TRAZODONE HYDROCHLORIDE
     Route: 065

REACTIONS (2)
  - Drug abuse [Unknown]
  - Drug interaction [Unknown]
